FAERS Safety Report 8770630 (Version 1)
Quarter: 2012Q4

REPORT INFORMATION
  Report Type: 
  Country: DE (occurrence: DE)
  Receive Date: 20120906
  Receipt Date: 20120906
  Transmission Date: 20130627
  Serious: Yes (Hospitalization)
  Sender: FDA-Public Use
  Company Number: DE-ROCHE-1116874

PATIENT
  Age: 42 Year
  Sex: Female

DRUGS (3)
  1. ROACTEMRA [Suspect]
     Indication: PRODUCT USED FOR UNKNOWN INDICATION
     Route: 065
     Dates: start: 201104
  2. PREDNISOLON [Concomitant]
     Route: 065
  3. FENTANYL [Concomitant]

REACTIONS (1)
  - Epilepsy [Recovered/Resolved]
